FAERS Safety Report 23736873 (Version 1)
Quarter: 2024Q2

REPORT INFORMATION
  Report Type: Spontaneous
  Country: CA (occurrence: CA)
  Receive Date: 20240412
  Receipt Date: 20240412
  Transmission Date: 20240715
  Serious: Yes (Other)
  Sender: FDA-Public Use
  Company Number: CA-SUNPHARMA-2024R1-440422AA

PATIENT
  Age: 35 Year
  Sex: Female

DRUGS (22)
  1. ISOTRETINOIN [Suspect]
     Active Substance: ISOTRETINOIN
     Indication: Cheilitis
     Dosage: 10 MILLIGRAM, QD
     Route: 065
  2. ISOTRETINOIN [Suspect]
     Active Substance: ISOTRETINOIN
     Indication: Oral pustule
  3. DOXYCYCLINE [Suspect]
     Active Substance: DOXYCYCLINE
     Indication: Cheilitis
     Dosage: UNK
     Route: 065
  4. HYDROCORTISONE [Suspect]
     Active Substance: HYDROCORTISONE
     Indication: Cheilitis
     Dosage: 0.2 PERCENT
     Route: 065
  5. METHOTREXATE [Suspect]
     Active Substance: METHOTREXATE
     Indication: Cheilitis
     Dosage: UNK
     Route: 065
  6. TACROLIMUS [Suspect]
     Active Substance: TACROLIMUS
     Indication: Prophylaxis
     Dosage: UNK
     Route: 061
  7. TACROLIMUS [Suspect]
     Active Substance: TACROLIMUS
     Indication: Cheilitis
     Dosage: UNK
     Route: 065
  8. TACROLIMUS [Suspect]
     Active Substance: TACROLIMUS
     Indication: Prophylaxis
     Dosage: UNK
     Route: 065
  9. TACROLIMUS [Suspect]
     Active Substance: TACROLIMUS
     Indication: Cheilitis
  10. CRISABOROLE [Suspect]
     Active Substance: CRISABOROLE
     Indication: Cheilitis
     Dosage: UNK
     Route: 065
  11. CRISABOROLE [Suspect]
     Active Substance: CRISABOROLE
     Indication: Cheilitis
     Dosage: UNK, BID
     Route: 065
  12. CRISABOROLE [Suspect]
     Active Substance: CRISABOROLE
     Indication: Dermatitis atopic
     Dosage: UNK
     Route: 065
  13. DUPILUMAB [Suspect]
     Active Substance: DUPILUMAB
     Indication: Cheilitis
     Dosage: 600 MILLIGRAM
     Route: 065
  14. DUPILUMAB [Suspect]
     Active Substance: DUPILUMAB
     Dosage: 300 MILLIGRAM, 1DOSE/4WEEKS
     Route: 065
  15. DAPSONE [Suspect]
     Active Substance: DAPSONE
     Indication: Cheilitis
     Dosage: UNK
     Route: 065
  16. DAPSONE [Suspect]
     Active Substance: DAPSONE
     Dosage: 5.0 PERCENT, BID
     Route: 065
  17. METHOTREXATE SODIUM [Suspect]
     Active Substance: METHOTREXATE SODIUM
     Indication: Product used for unknown indication
     Dosage: UNK
     Route: 065
  18. HYDROCORTISONE VALERATE [Concomitant]
     Active Substance: HYDROCORTISONE VALERATE
     Indication: Cheilitis
     Dosage: UNK
     Route: 065
  19. PARAFFIN [Concomitant]
     Active Substance: PARAFFIN
     Indication: Cheilitis
     Dosage: UNK
     Route: 065
  20. VALACYCLOVIR [Concomitant]
     Active Substance: VALACYCLOVIR HYDROCHLORIDE
     Indication: Prophylaxis
     Dosage: 500 MILLIGRAM, BID
     Route: 065
  21. METHOTREXATE [Suspect]
     Active Substance: METHOTREXATE
     Indication: Oral pustule
     Dosage: UNK
     Route: 065
  22. METHOTREXATE [Suspect]
     Active Substance: METHOTREXATE
     Indication: Cheilitis

REACTIONS (7)
  - Cheilitis [Recovered/Resolved]
  - Dermatitis [Recovered/Resolved]
  - Eyelid irritation [Recovered/Resolved]
  - Off label use [Recovered/Resolved]
  - Therapeutic product ineffective [Recovered/Resolved]
  - Condition aggravated [Recovered/Resolved]
  - Drug ineffective [Recovered/Resolved]
